FAERS Safety Report 8593651-4 (Version None)
Quarter: 2012Q3

REPORT INFORMATION
  Report Type: 
  Country: None (occurrence: None)
  Receive Date: 20120814
  Receipt Date: 20120801
  Transmission Date: 20120928
  Serious: No
  Sender: FDA-Public Use
  Company Number: US-ASTRAZENECA-2012SE45312

PATIENT
  Age: 61 Year
  Sex: Female
  Weight: 83.9 kg

DRUGS (8)
  1. SYMBICORT [Suspect]
     Indication: ASTHMA
     Dosage: 80/4.5, 2 PUFFS  BID
     Route: 055
     Dates: start: 20100101
  2. NEURONTIN [Concomitant]
     Indication: NEUROPATHY PERIPHERAL
  3. SIMVASTATIN [Concomitant]
  4. MULTI-VITAMIN [Concomitant]
  5. HYDROCHLOROTHIAZIDE [Concomitant]
  6. INSULIN PUMP [Concomitant]
  7. LISINOPRIL [Concomitant]
     Indication: RENAL DISORDER
  8. ASPIRIN [Concomitant]
     Dosage: DAILY

REACTIONS (5)
  - BRONCHITIS [None]
  - DRUG DOSE OMISSION [None]
  - RESPIRATION ABNORMAL [None]
  - ERYTHEMA [None]
  - COUGH [None]
